FAERS Safety Report 4770703-8 (Version None)
Quarter: 2005Q3

REPORT INFORMATION
  Report Type: 
  Country: None (occurrence: None)
  Receive Date: 20050915
  Receipt Date: 20050131
  Transmission Date: 20060218
  Serious: No
  Sender: FDA-Public Use
  Company Number: US-GLAXOSMITHKLINE-A0543070A

PATIENT
  Age: 59 Year
  Sex: Female

DRUGS (3)
  1. RELENZA [Suspect]
     Dosage: 1PUFF PER DAY
     Route: 055
     Dates: start: 20050129
  2. BENAZEPRIL HCL [Concomitant]
  3. CHLORTHALIDONE [Concomitant]

REACTIONS (4)
  - ABDOMINAL PAIN UPPER [None]
  - HEART RATE INCREASED [None]
  - HYPOTENSION [None]
  - SWELLING FACE [None]
